FAERS Safety Report 12446334 (Version 1)
Quarter: 2016Q2

REPORT INFORMATION
  Report Type: Spontaneous
  Country: US (occurrence: None)
  Receive Date: 20160607
  Receipt Date: 20160607
  Transmission Date: 20160815
  Serious: No
  Sender: FDA-Public Use
  Company Number: None

PATIENT
  Age: 63 Year
  Sex: Female
  Weight: 63.5 kg

DRUGS (1)
  1. LORAZEPAM GENERIC FOR ATIVAN, 0.5 MG ACTAVIS [Suspect]
     Active Substance: LORAZEPAM
     Indication: INSOMNIA
     Dosage: 30 TABLET(S) AT BEDTIME TAKEN BY MOUTH
     Route: 048

REACTIONS (7)
  - Panic attack [None]
  - Anxiety [None]
  - Fear [None]
  - Sleep terror [None]
  - Depression [None]
  - Product quality issue [None]
  - Drug dose omission [None]
